FAERS Safety Report 5269299-6 (Version None)
Quarter: 2007Q1

REPORT INFORMATION
  Report Type: 
  Country: None (occurrence: None)
  Receive Date: 20070319
  Receipt Date: 20070307
  Transmission Date: 20070707
  Serious: Yes (Other)
  Sender: FDA-Public Use
  Company Number: FR-PFIZER INC-2006149444

PATIENT
  Sex: Female
  Weight: 49 kg

DRUGS (18)
  1. LYRICA [Suspect]
     Indication: BONE PAIN
  2. ASPIRIN [Concomitant]
  3. VENLAFAXINE HYDROCHLORIDE [Concomitant]
  4. ESOMEPRAZOLE MAGNESIUM [Concomitant]
  5. FORMOTEROL FUMARATE [Concomitant]
  6. ACETAMINOPHEN [Concomitant]
     Route: 048
  7. AMLODIPINE [Concomitant]
     Route: 048
  8. GINKGO BILOBA [Concomitant]
  9. CLONAZEPAM [Concomitant]
     Route: 048
  10. LATANOPROST [Concomitant]
  11. LOMEFLOXACIN HYDROCHLORIDE [Concomitant]
  12. MORPHINE SULFATE [Concomitant]
     Route: 048
  13. LOPRIL [Concomitant]
     Route: 048
  14. ATARAX [Concomitant]
     Route: 048
  15. ALIMEMAZINE TARTRATE [Concomitant]
     Route: 048
  16. ZOPICLONE [Concomitant]
     Route: 048
  17. GLYCEROL 2.6% [Concomitant]
  18. NORFLOXACIN [Concomitant]
     Route: 048

REACTIONS (2)
  - HALLUCINATION [None]
  - NIGHTMARE [None]
